FAERS Safety Report 6284815-3 (Version None)
Quarter: 2009Q3

REPORT INFORMATION
  Report Type: 
  Country: None (occurrence: None)
  Receive Date: 20090723
  Receipt Date: 20090709
  Transmission Date: 20100115
  Serious: Yes (Death)
  Sender: FDA-Public Use
  Company Number: 2009002060

PATIENT
  Age: 72 Year
  Sex: Male

DRUGS (7)
  1. ERLOTINIB(ERLOTINIB) (TABLET) (ERLOTINIB) [Suspect]
     Indication: NON-SMALL CELL LUNG CANCER
     Dosage: (150 MG,QD),ORAL
     Route: 048
     Dates: start: 20090512, end: 20090605
  2. VERUTEX [Suspect]
     Indication: RASH
     Dosage: TOPICAL
     Route: 061
  3. ERYTHROMYCIN [Suspect]
     Indication: RASH
     Dosage: TOPICAL
     Route: 061
  4. FISIOGEL [Suspect]
     Indication: RASH
     Dosage: TOPICAL
     Route: 061
  5. OMEPRAZOLE [Concomitant]
  6. SIMVASTATIN [Concomitant]
  7. THEOPHYLLINE [Concomitant]

REACTIONS (1)
  - RESPIRATORY FAILURE [None]
